FAERS Safety Report 4779726-6 (Version None)
Quarter: 2005Q3

REPORT INFORMATION
  Report Type: 
  Country: None (occurrence: None)
  Receive Date: 20050914
  Receipt Date: 20050427
  Transmission Date: 20060218
  Serious: Yes (Hospitalization, Other)
  Sender: FDA-Public Use
  Company Number: 163-20785-03030175

PATIENT
  Age: 61 Year
  Sex: Male

DRUGS (8)
  1. THALOMID [Suspect]
     Indication: MULTIPLE MYELOMA
     Dosage: 200 MG, DAILY, ORAL
     Route: 048
     Dates: start: 20030122, end: 20030305
  2. DEXAMETHASONE [Suspect]
     Indication: MULTIPLE MYELOMA
     Dosage: 40 MG, DAILY, ORAL
     Route: 048
     Dates: start: 20030224, end: 20030227
  3. CYTOXAN [Suspect]
     Indication: MULTIPLE MYELOMA
     Dosage: 780 MG, DAILY, INTRAVENOUS
     Route: 042
     Dates: start: 20030224, end: 20030227
  4. ETOPOSIDE [Suspect]
     Indication: MULTIPLE MYELOMA
     Dosage: 78 MG, DAILY, INTRAVENOUS
     Route: 042
     Dates: start: 20030224, end: 20030227
  5. CISPLATIN [Suspect]
     Indication: MULTIPLE MYELOMA
     Dosage: 29 MG, DAILY, INTRAVENOUS
     Route: 042
     Dates: start: 20030224, end: 20030227
  6. LOVENOX (HEPARIN-FRACTION, SODIUM SALT) (UNKNOWN) [Concomitant]
  7. ACYCLOVIR (ACICLOVIR) (UNKNOWN) [Concomitant]
  8. DIFLUCAN (FLUCONAZOLE) (UNKNOWN) [Concomitant]

REACTIONS (3)
  - DEEP VEIN THROMBOSIS [None]
  - GROIN PAIN [None]
  - SKIN WARM [None]
